FAERS Safety Report 10097967 (Version 1)
Quarter: 2014Q2

REPORT INFORMATION
  Report Type: Spontaneous
  Country: JP (occurrence: JP)
  Receive Date: 20140423
  Receipt Date: 20140423
  Transmission Date: 20141212
  Serious: Yes (Other)
  Sender: FDA-Public Use
  Company Number: JP-BRISTOL-MYERS SQUIBB COMPANY-20647624

PATIENT
  Sex: 0

DRUGS (2)
  1. ERBITUX SOLN FOR INF 5MG/ML [Suspect]
     Indication: COLORECTAL CANCER
     Route: 041
  2. IRINOTECAN HCL [Concomitant]
     Indication: COLORECTAL CANCER
     Route: 041

REACTIONS (1)
  - Myocardial infarction [Unknown]
